FAERS Safety Report 6520977-8 (Version None)
Quarter: 2009Q4

REPORT INFORMATION
  Report Type: 
  Country: None (occurrence: None)
  Receive Date: 20091229
  Receipt Date: 20091218
  Transmission Date: 20100525
  Serious: Yes (Hospitalization)
  Sender: FDA-Public Use
  Company Number: AU-PFIZER INC-2009312658

PATIENT
  Age: 61 Year
  Sex: Female

DRUGS (3)
  1. DILTIAZEM [Suspect]
     Indication: BLOOD PRESSURE INCREASED
     Dosage: 180 MG, DAILY
     Route: 048
  2. SUTENT [Suspect]
     Indication: RENAL CELL CARCINOMA
     Dosage: 50 MG, 1X/DAY
     Route: 065
     Dates: start: 20090901
  3. AVAPRO [Concomitant]

REACTIONS (11)
  - ANAEMIA [None]
  - DRUG INTERACTION [None]
  - MOUTH ULCERATION [None]
  - MUCOSAL INFLAMMATION [None]
  - NEUTROPENIA [None]
  - PLATELET COUNT DECREASED [None]
  - PYREXIA [None]
  - RASH [None]
  - SEPSIS [None]
  - WHITE BLOOD CELL COUNT DECREASED [None]
  - YELLOW SKIN [None]
